FAERS Safety Report 7713413-7 (Version None)
Quarter: 2011Q3

REPORT INFORMATION
  Report Type: 
  Country: None (occurrence: None)
  Receive Date: 20110826
  Receipt Date: 20110819
  Transmission Date: 20111222
  Serious: Yes (Hospitalization)
  Sender: FDA-Public Use
  Company Number: US-JNJFOC-20110809796

PATIENT
  Sex: Female
  Weight: 55.3 kg

DRUGS (7)
  1. FLUCONAZOLE [Concomitant]
  2. NYSTATIN [Concomitant]
  3. INFLIXIMAB, RECOMBINANT [Suspect]
     Indication: CROHN'S DISEASE
     Route: 042
     Dates: start: 20101215
  4. NEXIUM [Concomitant]
  5. PREDNISONE [Concomitant]
  6. MESALAMINE [Concomitant]
     Route: 048
  7. ANTIBIOTICS [Concomitant]

REACTIONS (1)
  - CROHN'S DISEASE [None]
